FAERS Safety Report 12095397 (Version 1)
Quarter: 2016Q1

REPORT INFORMATION
  Report Type: Spontaneous
  Country: JP (occurrence: JP)
  Receive Date: 20160219
  Receipt Date: 20160219
  Transmission Date: 20160526
  Serious: Yes (Death, Other)
  Sender: FDA-Public Use
  Company Number: PHHY2016JP008069

PATIENT
  Age: 55 Year
  Sex: Male

DRUGS (9)
  1. 5-FLUOROURACIL [Suspect]
     Active Substance: FLUOROURACIL
     Indication: SQUAMOUS CELL CARCINOMA
     Dosage: 600 MG/M2, UNK
     Route: 048
  2. MEROPENEM. [Suspect]
     Active Substance: MEROPENEM
     Route: 065
  3. DOCETAXEL. [Suspect]
     Active Substance: DOCETAXEL
     Indication: SQUAMOUS CELL CARCINOMA
     Dosage: 10 MG/M2, QW
     Route: 048
  4. CISPLATIN. [Suspect]
     Active Substance: CISPLATIN
     Indication: NASOPHARYNGEAL CANCER
     Dosage: 60 UNK, UNK
     Route: 048
  5. DOCETAXEL. [Suspect]
     Active Substance: DOCETAXEL
     Indication: NASOPHARYNGEAL CANCER
     Dosage: 60 MG/M2, QD
     Route: 048
  6. 5-FLUOROURACIL [Suspect]
     Active Substance: FLUOROURACIL
     Indication: NASOPHARYNGEAL CANCER
  7. LINEZOLID. [Suspect]
     Active Substance: LINEZOLID
     Indication: PNEUMONIA STAPHYLOCOCCAL
     Route: 065
  8. GRANULOCYTE COLONY STIMULATING FACTOR [Suspect]
     Active Substance: GRANULOCYTE COLONY-STIMULATING FACTOR NOS
     Indication: FEBRILE NEUTROPENIA
     Route: 065
  9. CISPLATIN. [Suspect]
     Active Substance: CISPLATIN
     Indication: SQUAMOUS CELL CARCINOMA
     Dosage: 20 MG/M2, QW
     Route: 048

REACTIONS (10)
  - Febrile neutropenia [Unknown]
  - Diarrhoea [Unknown]
  - Cytomegalovirus infection [Unknown]
  - Drug ineffective [Unknown]
  - Sepsis [Unknown]
  - Acute respiratory distress syndrome [Fatal]
  - Stomatitis [Unknown]
  - Platelet count decreased [Unknown]
  - Candida infection [Unknown]
  - Pneumonia staphylococcal [Fatal]
